FAERS Safety Report 5560256-9 (Version None)
Quarter: 2007Q4

REPORT INFORMATION
  Report Type: 
  Country: None (occurrence: None)
  Receive Date: 20071214
  Receipt Date: 20071029
  Transmission Date: 20080405
  Serious: No
  Sender: FDA-Public Use
  Company Number: US-ABBOTT-07P-163-0423166-00

PATIENT
  Sex: Female
  Weight: 58.566 kg

DRUGS (2)
  1. HUMIRA [Suspect]
     Indication: CROHN'S DISEASE
     Route: 058
     Dates: start: 20070901
  2. LINEZOLID [Suspect]
     Indication: STAPHYLOCOCCAL INFECTION
     Route: 048
     Dates: start: 20071001

REACTIONS (6)
  - HYPOAESTHESIA [None]
  - INJECTION SITE PAIN [None]
  - ORAL CANDIDIASIS [None]
  - STAPHYLOCOCCAL INFECTION [None]
  - SWELLING FACE [None]
  - VOMITING [None]
